FAERS Safety Report 5206243-1 (Version None)
Quarter: 2007Q1

REPORT INFORMATION
  Report Type: 
  Country: None (occurrence: None)
  Receive Date: 20070111
  Receipt Date: 20061229
  Transmission Date: 20070707
  Serious: Yes (Other)
  Sender: FDA-Public Use
  Company Number: US-SHR-US-2006-028119

PATIENT
  Age: 56 Year
  Sex: Female
  Weight: 68.027 kg

DRUGS (8)
  1. BETASERON [Suspect]
     Indication: RELAPSING-REMITTING MULTIPLE SCLEROSIS
     Dosage: 8 MIU, EVERY 2D
     Route: 058
     Dates: start: 20000912
  2. BACLOFEN [Concomitant]
  3. CELEXA [Concomitant]
  4. THYROID TAB [Concomitant]
  5. MOBIC [Concomitant]
  6. VYTORIN [Concomitant]
  7. ZYRTEC [Concomitant]
  8. AMBIEN [Concomitant]

REACTIONS (2)
  - INJECTION SITE REACTION [None]
  - LICHEN SCLEROSUS [None]
